FAERS Safety Report 6192829-7 (Version None)
Quarter: 2009Q2

REPORT INFORMATION
  Report Type: 
  Country: None (occurrence: None)
  Receive Date: 20090518
  Receipt Date: 20090507
  Transmission Date: 20091009
  Serious: Yes (Other)
  Sender: FDA-Public Use
  Company Number: US-AVENTIS-200914008US

PATIENT
  Sex: Female

DRUGS (7)
  1. LANTUS [Suspect]
     Route: 058
  2. OPTICLIK (INSULIN INJECTION PEN) [Suspect]
  3. HUMALOG [Concomitant]
     Dosage: DOSE: 2 X DAILY
  4. UROLOGICALS [Concomitant]
     Dosage: DOSE: UNK
  5. OTHER RESPIRATORY SYSTEM PRODUCTS [Concomitant]
     Dosage: DOSE: UNK
  6. ANTIHYPERTENSIVES [Concomitant]
     Dosage: DOSE: UNK
  7. ALBUTEROL [Concomitant]
     Dosage: DOSE: UNK

REACTIONS (3)
  - BLOOD GLUCOSE INCREASED [None]
  - CATARACT [None]
  - MEDICATION ERROR [None]
